FAERS Safety Report 6726235-0 (Version None)
Quarter: 2010Q2

REPORT INFORMATION
  Report Type: 
  Country: None (occurrence: None)
  Receive Date: 20100514
  Receipt Date: 20100504
  Transmission Date: 20101027
  Serious: Yes (Other)
  Sender: FDA-Public Use
  Company Number: US-PFIZER INC-2010030506

PATIENT
  Sex: Female
  Weight: 79 kg

DRUGS (13)
  1. CHANTIX [Suspect]
     Indication: SMOKING CESSATION THERAPY
     Dosage: 1 MG, 2X/DAY
     Dates: start: 20100101
  2. ALENDRONIC ACID [Concomitant]
     Dosage: 70 MG, WEEKLY
  3. PRINIVIL [Concomitant]
     Dosage: UNK
  4. VICODIN [Concomitant]
     Indication: FIBROMYALGIA
     Dosage: 5MG/500MG, UP TO 4 DAILY AS NEEDED PLUS ONE AT NIGHT
  5. VICODIN [Concomitant]
     Dosage: 5MG/500MG AT BEDTIME
  6. OMEPRAZOLE [Concomitant]
     Dosage: 40 MG, 1X/DAY
  7. METOPROLOL [Concomitant]
     Indication: TACHYCARDIA
     Dosage: 12.5 MG, 2X/DAY
  8. ALPRAZOLAM [Concomitant]
     Indication: CONVULSION
     Dosage: 0.25 MG, UNK
  9. ALPRAZOLAM [Concomitant]
     Indication: PANIC ATTACK
  10. TRIAMTERENE AND HYDROCHLOROTHIAZIDE [Concomitant]
     Dosage: UNK
  11. TRIAMCINOLONE [Concomitant]
     Dosage: UNK
     Route: 061
  12. VITACAL [Concomitant]
     Dosage: UNK
  13. CYMBALTA [Concomitant]
     Indication: FIBROMYALGIA
     Dosage: DAILY

REACTIONS (6)
  - ABNORMAL DREAMS [None]
  - FATIGUE [None]
  - NAUSEA [None]
  - SEDATION [None]
  - SOMNOLENCE [None]
  - WEIGHT INCREASED [None]
